FAERS Safety Report 5607846-2 (Version None)
Quarter: 2008Q1

REPORT INFORMATION
  Report Type: 
  Country: None (occurrence: None)
  Receive Date: 20080130
  Receipt Date: 20080123
  Transmission Date: 20080703
  Serious: Yes (Hospitalization)
  Sender: FDA-Public Use
  Company Number: FR-AVENTIS-200810365FR

PATIENT
  Age: 66 Year
  Sex: Male

DRUGS (7)
  1. LASILIX                            /00032601/ [Suspect]
     Route: 048
     Dates: end: 20070219
  2. PREVISCAN                          /00789001/ [Suspect]
     Indication: CARDIOMYOPATHY
     Route: 048
     Dates: end: 20070219
  3. LOXEN [Concomitant]
     Route: 048
     Dates: end: 20070219
  4. IMOVANE [Concomitant]
     Indication: INSOMNIA
     Route: 048
  5. HYPERIUM                           /00939801/ [Concomitant]
     Route: 048
  6. TEMESTA                            /00273201/ [Concomitant]
     Indication: ANXIETY
     Route: 048
  7. LOXEN [Concomitant]
     Route: 048

REACTIONS (1)
  - MUSCLE HAEMORRHAGE [None]
